FAERS Safety Report 4960383-0 (Version None)
Quarter: 2006Q1

REPORT INFORMATION
  Report Type: 
  Country: None (occurrence: None)
  Receive Date: 20060328
  Receipt Date: 20060310
  Transmission Date: 20060701
  Serious: Yes (Life-Threatening)
  Sender: FDA-Public Use
  Company Number: 2006036097

PATIENT
  Age: 78 Year
  Sex: Male

DRUGS (1)
  1. ESTRACYT                    (ESTRAMUSTINE PHOSPHATE SODIUM) [Suspect]
     Indication: ILL-DEFINED DISORDER
     Dosage: ORAL
     Route: 048

REACTIONS (2)
  - BILIARY CIRRHOSIS PRIMARY [None]
  - HEPATIC NEOPLASM MALIGNANT [None]
